FAERS Safety Report 9076065 (Version 1)
Quarter: 2013Q1

REPORT INFORMATION
  Report Type: Spontaneous
  Country: BR (occurrence: BR)
  Receive Date: 20130201
  Receipt Date: 20130201
  Transmission Date: 20140127
  Serious: Yes (Death, Life-Threatening)
  Sender: FDA-Public Use
  Company Number: PHHY2012BR126455

PATIENT
  Age: 70 Year
  Sex: Male
  Weight: 70 kg

DRUGS (5)
  1. DIOCOMB SI [Suspect]
     Dosage: 1 DF (80 MG VALS AND 20 MG SIMV), UNK
  2. STARFORM [Suspect]
     Dosage: 1 DF (120 MG NATE AND 500 MG METF), UNK
  3. DIOVAN HCT [Suspect]
     Dosage: 1 DF (160 MG VALS AND 12.5 MG HCTZ), UNK
  4. HUMALOG [Concomitant]
     Indication: DIABETES MELLITUS
     Route: 058
  5. LANTUS [Concomitant]
     Indication: DIABETES MELLITUS
     Route: 058

REACTIONS (2)
  - Infarction [Fatal]
  - Hyperglycaemia [Not Recovered/Not Resolved]
